FAERS Safety Report 10095908 (Version 2)
Quarter: 2014Q2

REPORT INFORMATION
  Report Type: Spontaneous
  Country: US (occurrence: US)
  Receive Date: 20140422
  Receipt Date: 20140422
  Transmission Date: 20141212
  Serious: No
  Sender: FDA-Public Use
  Company Number: US-GILEAD-2013-0072982

PATIENT
  Sex: Female

DRUGS (2)
  1. LETAIRIS [Suspect]
     Indication: PRODUCT USED FOR UNKNOWN INDICATION
     Dosage: 5 MG, QD
     Dates: start: 201302
  2. LETAIRIS [Suspect]
     Dosage: 5 MG, UNK
     Dates: start: 20130314

REACTIONS (4)
  - Dyspnoea [Unknown]
  - Peripheral swelling [Unknown]
  - Dyspnoea [Unknown]
  - Fluid retention [Unknown]
